FAERS Safety Report 20029200 (Version 1)
Quarter: 2021Q4

REPORT INFORMATION
  Report Type: Other
  Country: GB (occurrence: GB)
  Receive Date: 20211103
  Receipt Date: 20211103
  Transmission Date: 20220304
  Serious: Yes (Other)
  Sender: FDA-Public Use
  Company Number: None

PATIENT
  Age: 83 Year
  Sex: Female

DRUGS (2)
  1. PREDNISOLONE [Suspect]
     Active Substance: PREDNISOLONE
     Indication: Product used for unknown indication
     Dosage: UNK
     Route: 065
  2. BROMOCRIPTINE [Suspect]
     Active Substance: BROMOCRIPTINE
     Indication: Pituitary tumour
     Dosage: UNK
     Route: 065

REACTIONS (5)
  - Blindness transient [Unknown]
  - Pruritus [Unknown]
  - Sensory loss [Unknown]
  - Diabetes mellitus [Unknown]
  - Glaucoma [Unknown]
